FAERS Safety Report 11207637 (Version 1)
Quarter: 2015Q2

REPORT INFORMATION
  Report Type: Spontaneous
  Country: FR (occurrence: FR)
  Receive Date: 20150622
  Receipt Date: 20150622
  Transmission Date: 20150821
  Serious: Yes (Hospitalization, Other)
  Sender: FDA-Public Use
  Company Number: FR-BAXTER-2015BAX029132

PATIENT
  Age: 19 Year
  Sex: Male

DRUGS (26)
  1. HOLOXAN 2000 MG, POUDRE POUR USAGE PARENT?RAL [Suspect]
     Active Substance: IFOSFAMIDE
     Dosage: DAY 2 OF 2ND COURSE
     Route: 042
     Dates: start: 20141231
  2. HOLOXAN 2000 MG, POUDRE POUR USAGE PARENT?RAL [Suspect]
     Active Substance: IFOSFAMIDE
     Dosage: DAY 2 OF 4TH COURSE
     Route: 042
     Dates: start: 20150213
  3. DOXORUBICIN [Suspect]
     Active Substance: DOXORUBICIN
     Dosage: DAY 1 OF 5TH COURSE
     Route: 042
     Dates: start: 20150306
  4. MERONEM [Concomitant]
     Active Substance: MEROPENEM
     Indication: SKIN INFECTION
     Route: 042
     Dates: start: 201411
  5. LAROXYL [Concomitant]
     Active Substance: AMITRIPTYLINE
     Indication: DRUG THERAPY
     Route: 065
  6. HOLOXAN 2000 MG, POUDRE POUR USAGE PARENT?RAL [Suspect]
     Active Substance: IFOSFAMIDE
     Indication: OSTEOSARCOMA
     Dosage: DAY 2 OF 1ST COURSE
     Route: 042
     Dates: start: 20141210
  7. CISPLATIN. [Suspect]
     Active Substance: CISPLATIN
     Dosage: DAY 1 OF 5TH COURSE
     Route: 042
     Dates: start: 20150306
  8. ONDANSETRON [Concomitant]
     Active Substance: ONDANSETRON
     Indication: PRODUCT USED FOR UNKNOWN INDICATION
     Route: 042
     Dates: start: 20150306
  9. DOXORUBICIN [Suspect]
     Active Substance: DOXORUBICIN
     Dosage: DAY 1 OF 4TH COURSE
     Route: 042
     Dates: start: 20150212
  10. CISPLATIN. [Suspect]
     Active Substance: CISPLATIN
     Dosage: DAY 1 OF 2ND COURSE
     Route: 042
     Dates: start: 20141230
  11. METHYLPREDNISOLONE. [Suspect]
     Active Substance: METHYLPREDNISOLONE
     Indication: PRODUCT USED FOR UNKNOWN INDICATION
     Route: 042
     Dates: start: 20150306, end: 20150308
  12. XANAX [Concomitant]
     Active Substance: ALPRAZOLAM
     Indication: DRUG THERAPY
     Route: 065
  13. HOLOXAN 2000 MG, POUDRE POUR USAGE PARENT?RAL [Suspect]
     Active Substance: IFOSFAMIDE
     Dosage: DAY 2 OF 3RD COURSE
     Route: 042
     Dates: start: 20150122
  14. DOXORUBICIN [Suspect]
     Active Substance: DOXORUBICIN
     Dosage: DAY 1 OF 3RD COURSE
     Route: 042
     Dates: start: 20150121
  15. CISPLATIN. [Suspect]
     Active Substance: CISPLATIN
     Dosage: DAY 1 OF 4TH COURSE
     Route: 042
     Dates: start: 20150212
  16. EMEND [Suspect]
     Active Substance: APREPITANT
     Indication: PRODUCT USED FOR UNKNOWN INDICATION
     Route: 048
     Dates: start: 20150306, end: 20150308
  17. ESOMEPRAZOLE [Concomitant]
     Active Substance: ESOMEPRAZOLE
     Indication: DRUG THERAPY
     Route: 065
  18. HOLOXAN 2000 MG, POUDRE POUR USAGE PARENT?RAL [Suspect]
     Active Substance: IFOSFAMIDE
     Dosage: DAY 2 OF 5TH COURSE
     Route: 042
     Dates: start: 20150307
  19. DOXORUBICIN [Suspect]
     Active Substance: DOXORUBICIN
     Indication: OSTEOSARCOMA
     Dosage: DAY 1 OF 1ST COURSE
     Route: 042
     Dates: start: 20141209
  20. MERONEM [Concomitant]
     Active Substance: MEROPENEM
     Route: 042
     Dates: start: 20150310
  21. INNOHEP [Concomitant]
     Active Substance: TINZAPARIN SODIUM
     Indication: DRUG THERAPY
     Route: 065
  22. DOXORUBICIN [Suspect]
     Active Substance: DOXORUBICIN
     Dosage: DAY 1 OF 2ND COURSE
     Route: 042
     Dates: start: 20141230
  23. CISPLATIN. [Suspect]
     Active Substance: CISPLATIN
     Dosage: DAY 1 OF 3RD COURSE
     Route: 042
     Dates: start: 20150121
  24. CISPLATIN. [Suspect]
     Active Substance: CISPLATIN
     Indication: OSTEOSARCOMA
     Dosage: DAY 1 OF 1ST COURSE
     Route: 042
     Dates: start: 20141209
  25. UROMITEXAN 5 G/50 ML, SOLUTION INJECTABLE POUR PERFUSION EN FLACON [Suspect]
     Active Substance: MESNA
     Indication: PRODUCT USED FOR UNKNOWN INDICATION
     Route: 042
     Dates: start: 20150307, end: 20150307
  26. HYDROXYZINE [Concomitant]
     Active Substance: HYDROXYZINE\HYDROXYZINE HYDROCHLORIDE
     Indication: DRUG THERAPY
     Route: 065

REACTIONS (2)
  - Encephalopathy [Recovered/Resolved]
  - Renal tubular disorder [Recovering/Resolving]

NARRATIVE: CASE EVENT DATE: 20150307
